FAERS Safety Report 23262253 (Version 1)
Quarter: 2023Q4

REPORT INFORMATION
  Report Type: Spontaneous
  Country: BR (occurrence: BR)
  Receive Date: 20231205
  Receipt Date: 20231205
  Transmission Date: 20240110
  Serious: Yes (Other)
  Sender: FDA-Public Use
  Company Number: BR-TAKEDA-2023TUS116791

PATIENT
  Sex: Female

DRUGS (1)
  1. DEXILANT [Suspect]
     Active Substance: DEXLANSOPRAZOLE
     Indication: Gastrooesophageal reflux disease
     Dosage: 60 MILLIGRAM
     Route: 065
     Dates: start: 20231128

REACTIONS (6)
  - Diarrhoea haemorrhagic [Unknown]
  - General physical health deterioration [Unknown]
  - Off label use [Unknown]
  - Myalgia [Unknown]
  - Migraine [Unknown]
  - Diarrhoea [Unknown]
